FAERS Safety Report 5577112-2 (Version None)
Quarter: 2007Q4

REPORT INFORMATION
  Report Type: 
  Country: None (occurrence: None)
  Receive Date: 20071228
  Receipt Date: 20071220
  Transmission Date: 20080405
  Serious: Yes (Other)
  Sender: FDA-Public Use
  Company Number: ZA-PFIZER INC-2007083054

PATIENT
  Sex: Female
  Weight: 53 kg

DRUGS (15)
  1. BLINDED UK-427,857 [Suspect]
     Indication: HIV TEST POSITIVE
     Route: 048
  2. COMBIVIR [Suspect]
     Indication: HIV INFECTION
     Route: 048
  3. EFAVIRENZ [Concomitant]
     Route: 048
  4. AMITRIPTLINE HCL [Concomitant]
     Route: 048
  5. DICLOFENAC [Concomitant]
     Route: 048
  6. ACETAMINOPHEN [Concomitant]
     Route: 048
     Dates: start: 20070831, end: 20071024
  7. BACTRIM [Concomitant]
     Route: 048
  8. VITAMIN B COMPLEX CAP [Concomitant]
     Route: 048
  9. MORPHINE [Concomitant]
     Route: 048
  10. SORBITOL [Concomitant]
     Route: 048
  11. SORBITOL [Concomitant]
  12. SENNA [Concomitant]
  13. BETAMETHASONE [Concomitant]
     Route: 048
  14. METOCLOPRAMIDE [Concomitant]
     Route: 048
  15. CODEINE PHOSPHATE AND ACETAMINOPHEN [Concomitant]

REACTIONS (1)
  - LUNG ADENOCARCINOMA METASTATIC [None]
